FAERS Safety Report 5505882-8 (Version None)
Quarter: 2007Q4

REPORT INFORMATION
  Report Type: 
  Country: None (occurrence: None)
  Receive Date: 20071102
  Receipt Date: 20071023
  Transmission Date: 20080405
  Serious: Yes (Hospitalization, Other)
  Sender: FDA-Public Use
  Company Number: CA-PFIZER INC-2007090103

PATIENT
  Sex: Female

DRUGS (5)
  1. LYRICA [Suspect]
     Indication: NEURALGIA
     Route: 048
     Dates: start: 20060616, end: 20070605
  2. TYLENOL (CAPLET) [Concomitant]
     Indication: PAIN
  3. FOSAMAX [Concomitant]
     Indication: OSTEOPOROSIS
  4. CALCIUM WITH VITAMIN D [Concomitant]
     Indication: OSTEOPOROSIS
  5. REBIF [Concomitant]
     Indication: MULTIPLE SCLEROSIS
     Route: 058

REACTIONS (1)
  - ATRIOVENTRICULAR BLOCK SECOND DEGREE [None]
